FAERS Safety Report 10149522 (Version 1)
Quarter: 2014Q2

REPORT INFORMATION
  Report Type: Spontaneous
  Country: CL (occurrence: CL)
  Receive Date: 20140502
  Receipt Date: 20140502
  Transmission Date: 20141212
  Serious: Yes (Other)
  Sender: FDA-Public Use
  Company Number: CL-PFIZER INC-2014119308

PATIENT
  Age: 90 Year
  Sex: Female

DRUGS (7)
  1. XALATAN [Suspect]
     Indication: GLAUCOMA
     Dosage: 1 DROP 1X/DAY
     Route: 047
     Dates: start: 2004
  2. ASPIRIN ^BAYER^ [Concomitant]
  3. LEVOTHYROXINE [Concomitant]
  4. SERTRALINE [Concomitant]
  5. HYDROCHLOROTHIAZIDE [Concomitant]
  6. AMLODIPINE [Concomitant]
  7. ISOSORBIDE [Concomitant]

REACTIONS (2)
  - Senile dementia [Unknown]
  - Cataract [Unknown]
